FAERS Safety Report 21710563 (Version 2)
Quarter: 2023Q1

REPORT INFORMATION
  Report Type: Spontaneous
  Country: US (occurrence: US)
  Receive Date: 20221212
  Receipt Date: 20230116
  Transmission Date: 20230417
  Serious: Yes (Hospitalization)
  Sender: FDA-Public Use
  Company Number: US-BRISTOL-MYERS SQUIBB COMPANY-2022-151364

PATIENT
  Age: 71 Year
  Sex: Male

DRUGS (3)
  1. POMALYST [Suspect]
     Active Substance: POMALIDOMIDE
     Indication: Monoclonal gammopathy
     Route: 048
     Dates: start: 20220429
  2. POMALYST [Suspect]
     Active Substance: POMALIDOMIDE
     Indication: Plasma cell myeloma
     Route: 048
     Dates: start: 20220524
  3. POMALYST [Suspect]
     Active Substance: POMALIDOMIDE
     Indication: Osteoarthritis

REACTIONS (5)
  - Back pain [Unknown]
  - Gait disturbance [Unknown]
  - Scoliosis [Unknown]
  - Back disorder [Unknown]
  - Blood pressure decreased [Unknown]
